FAERS Safety Report 7681525-2 (Version None)
Quarter: 2011Q3

REPORT INFORMATION
  Report Type: 
  Country: None (occurrence: None)
  Receive Date: 20110812
  Receipt Date: 20110808
  Transmission Date: 20111222
  Serious: Yes (Life-Threatening, Hospitalization, Other)
  Sender: FDA-Public Use
  Company Number: PHHY2010JP50594

PATIENT
  Sex: Male
  Weight: 41 kg

DRUGS (9)
  1. FAMOTIDINE [Concomitant]
     Indication: PROPHYLAXIS
     Dosage: 20 MG, UNK
     Route: 048
  2. AFINITOR [Suspect]
     Dosage: 5 MG, PER DAY
     Dates: start: 20100713
  3. ACETAMINOPHEN [Concomitant]
     Indication: METASTATIC RENAL CELL CARCINOMA
     Dosage: 800 MG, UNK
     Route: 048
     Dates: start: 20100408
  4. AFINITOR [Suspect]
     Indication: METASTATIC RENAL CELL CARCINOMA
     Dosage: 5 MG, DAILY
     Route: 048
     Dates: start: 20100521, end: 20100531
  5. AFINITOR [Suspect]
     Dosage: 10 MG/DAY
     Route: 048
     Dates: start: 20100826
  6. AFINITOR [Suspect]
     Dosage: UNK UKN, UNK
     Dates: end: 20100712
  7. LENDORMIN [Concomitant]
     Indication: METASTATIC RENAL CELL CARCINOMA
     Dosage: 0.25 MG, UNK
     Route: 048
     Dates: start: 20090910
  8. CALCIUM POLYSTYRENE SULFONATE [Concomitant]
     Dosage: 75 MG, UNK
     Route: 048
     Dates: start: 20091210
  9. AFINITOR [Suspect]
     Dosage: 5 MG/DAY
     Route: 048
     Dates: start: 20100909, end: 20110512

REACTIONS (6)
  - HAEMOGLOBIN DECREASED [None]
  - RENAL IMPAIRMENT [None]
  - BLOOD LACTATE DEHYDROGENASE INCREASED [None]
  - NEOPLASM PROGRESSION [None]
  - NEOPLASM MALIGNANT [None]
  - BLOOD CREATININE INCREASED [None]
